FAERS Safety Report 11371124 (Version 1)
Quarter: 2015Q3

REPORT INFORMATION
  Report Type: Spontaneous
  Country: US (occurrence: US)
  Receive Date: 20150812
  Receipt Date: 20150812
  Transmission Date: 20151125
  Serious: Yes (Other)
  Sender: FDA-Public Use
  Company Number: US-SA-2015SA079288

PATIENT
  Sex: Male

DRUGS (1)
  1. KYNAMRO [Suspect]
     Active Substance: MIPOMERSEN SODIUM
     Route: 065

REACTIONS (7)
  - Injection site reaction [Recovered/Resolved]
  - Rash pruritic [Unknown]
  - Hypersensitivity [Unknown]
  - Rash papular [Unknown]
  - Wheezing [Unknown]
  - Rash [Unknown]
  - Throat irritation [Unknown]
